FAERS Safety Report 5391731-8 (Version None)
Quarter: 2007Q3

REPORT INFORMATION
  Report Type: 
  Country: None (occurrence: None)
  Receive Date: 20070717
  Receipt Date: 20070709
  Transmission Date: 20080115
  Serious: Yes (Hospitalization)
  Sender: FDA-Public Use
  Company Number: 2007000861

PATIENT
  Age: 56 Year
  Sex: Male

DRUGS (7)
  1. ERLOTINIB (TABLET) [Suspect]
     Indication: PANCREATIC CARCINOMA METASTATIC
     Dosage: 100 MG (QD), ORAL
     Route: 048
     Dates: start: 20060804
  2. BEVACIZUMAB (INJECTION FOR INFUSION) [Suspect]
     Indication: PANCREATIC CARCINOMA METASTATIC
     Dosage: 335 MG (Q2W), INTRAVENOUS
     Route: 042
     Dates: start: 20060804
  3. GEMCITABINE [Suspect]
     Indication: PANCREATIC CARCINOMA METASTATIC
     Dosage: 1300 MG (Q2W), INTRAVENOUS
     Route: 042
     Dates: start: 20060804
  4. ACETAMINOPHEN [Concomitant]
  5. DIPHENOXYLATE HYDROCHLORIDE (DIPHENOXYLATE HYDROCHLORIDE) [Concomitant]
  6. CAPECITABINE (CAPECITABINE) [Concomitant]
  7. RANITIDINE (RANITIDINE) [Concomitant]

REACTIONS (4)
  - CALCULUS BLADDER [None]
  - NEPHROLITHIASIS [None]
  - RENAL COLIC [None]
  - VOMITING [None]
